FAERS Safety Report 6571661-6 (Version None)
Quarter: 2010Q1

REPORT INFORMATION
  Report Type: 
  Country: None (occurrence: None)
  Receive Date: 20100205
  Receipt Date: 20100127
  Transmission Date: 20100710
  Serious: Yes (Other)
  Sender: FDA-Public Use
  Company Number: PHHY2009BR48665

PATIENT
  Sex: Male
  Weight: 70 kg

DRUGS (1)
  1. DIOVAN HCT [Suspect]
     Indication: HYPERTENSION
     Dosage: HALF A TABLET (320/12.5 MG) DAILY
     Route: 048
     Dates: start: 20090701

REACTIONS (10)
  - ANAEMIA [None]
  - BACK PAIN [None]
  - BALANITIS [None]
  - BLISTER [None]
  - DYSURIA [None]
  - INFLAMMATION [None]
  - MOUTH INJURY [None]
  - PRURITUS [None]
  - PYREXIA [None]
  - VOMITING [None]
